FAERS Safety Report 8859764 (Version 1)
Quarter: 2012Q4

REPORT INFORMATION
  Report Type: Report from Study
  Country: US (occurrence: US)
  Receive Date: 20121025
  Receipt Date: 20121025
  Transmission Date: 20130627
  Serious: No
  Sender: FDA-Public Use
  Company Number: US-ABBOTT-12P-163-0985523-00

PATIENT
  Age: 26 None
  Sex: Female
  Weight: 70.37 kg

DRUGS (2)
  1. LUPRON DEPOT [Suspect]
     Indication: ENDOMETRIOSIS
     Route: 030
     Dates: start: 20120820, end: 20120919
  2. MULTIVITAMIN [Concomitant]
     Indication: PRODUCT USED FOR UNKNOWN INDICATION
     Dosage: 1 daily
     Route: 048

REACTIONS (3)
  - Aphonia [Not Recovered/Not Resolved]
  - Hot flush [Unknown]
  - Dysphonia [Not Recovered/Not Resolved]
